FAERS Safety Report 10456580 (Version 2)
Quarter: 2014Q4

REPORT INFORMATION
  Report Type: Spontaneous
  Country: DE (occurrence: None)
  Receive Date: 20140912
  Receipt Date: 20141120
  Transmission Date: 20150528
  Serious: Yes (Other)
  Sender: FDA-Public Use
  Company Number: 7319343

PATIENT
  Age: 66 Year
  Sex: Female

DRUGS (2)
  1. EUTHYROX (LEVOTHYROXINE SODIUM) (LEVOTHYROXINE SODIUM) [Suspect]
     Active Substance: LEVOTHYROXINE SODIUM
     Indication: POST PROCEDURAL HYPOTHYROIDISM
     Dosage: 100 MCG (100 MCG, 1 IN 1 D) ORAL
     Route: 048
     Dates: start: 2012, end: 20140903
  2. PERENTEROL /00243701/ (YEAST DRIED) (YEAST DRIED) [Concomitant]

REACTIONS (5)
  - Hypermetabolism [None]
  - Feeling abnormal [None]
  - Hyperthyroidism [None]
  - Stress [None]
  - Pollakiuria [None]

NARRATIVE: CASE EVENT DATE: 2014
